FAERS Safety Report 8165689-2 (Version None)
Quarter: 2012Q1

REPORT INFORMATION
  Report Type: 
  Country: None (occurrence: None)
  Receive Date: 20120227
  Receipt Date: 20120221
  Transmission Date: 20120608
  Serious: Yes (Life-Threatening)
  Sender: FDA-Public Use
  Company Number: US-BAYER-2011-092560

PATIENT
  Age: 38 Year
  Sex: Female

DRUGS (7)
  1. DROSPIRENONE AND ETHINYL ESTRADIOL [Suspect]
     Route: 048
  2. BENADRYL [Concomitant]
     Dosage: 50 MG, Q4HR
     Route: 048
  3. KEFLEX [Concomitant]
     Dosage: 500 MG, UNK
     Route: 048
     Dates: start: 20070718
  4. YASMIN [Suspect]
     Route: 048
  5. ASPIRIN [Concomitant]
     Dosage: DAILY DOSE 325 MG
     Route: 048
     Dates: start: 20070830
  6. YAZ [Suspect]
     Route: 048
  7. ZITHROMAX [Concomitant]
     Dosage: 250 MG, UNK
     Route: 048
     Dates: start: 20070831

REACTIONS (6)
  - GENERAL PHYSICAL HEALTH DETERIORATION [None]
  - DEEP VEIN THROMBOSIS [None]
  - ANHEDONIA [None]
  - PAIN [None]
  - INJURY [None]
  - ANXIETY [None]
